FAERS Safety Report 19900268 (Version 1)
Quarter: 2021Q3

REPORT INFORMATION
  Report Type: Spontaneous
  Country: CA (occurrence: CA)
  Receive Date: 20210930
  Receipt Date: 20210930
  Transmission Date: 20211014
  Serious: Yes (Hospitalization, Other)
  Sender: FDA-Public Use
  Company Number: CA-AUROBINDO-AUR-APL-2021-040530

PATIENT
  Age: 96 Year
  Sex: Female

DRUGS (4)
  1. OMALIZUMAB. [Suspect]
     Active Substance: OMALIZUMAB
     Dosage: 300 MILLIGRAM, EVERY MONTH
     Route: 058
  2. MONTELUKAST [Suspect]
     Active Substance: MONTELUKAST SODIUM
     Indication: CHRONIC SPONTANEOUS URTICARIA
     Dosage: 1 DOSAGE FORM
     Route: 048
  3. OMALIZUMAB. [Suspect]
     Active Substance: OMALIZUMAB
     Indication: CHRONIC SPONTANEOUS URTICARIA
     Dosage: 300 MILLIGRAM
     Route: 058
  4. REACTINE [Concomitant]
     Indication: CHRONIC SPONTANEOUS URTICARIA
     Dosage: 60 MILLIGRAM
     Route: 048

REACTIONS (8)
  - Weight decreased [Unknown]
  - Blood pressure systolic increased [Unknown]
  - Initial insomnia [Unknown]
  - Dizziness [Unknown]
  - Fall [Unknown]
  - Product use in unapproved indication [Unknown]
  - Pruritus [Unknown]
  - Urticaria [Unknown]
